FAERS Safety Report 9991925 (Version 2)
Quarter: 2014Q2

REPORT INFORMATION
  Report Type: Spontaneous
  Country: US (occurrence: US)
  Receive Date: 20140310
  Receipt Date: 20140610
  Transmission Date: 20141212
  Serious: No
  Sender: FDA-Public Use
  Company Number: US-VIIV HEALTHCARE LIMITED-A1058879A

PATIENT
  Age: 40 Year
  Sex: Male
  Weight: 67.7 kg

DRUGS (2)
  1. TIVICAY [Suspect]
     Indication: HIV INFECTION
     Dosage: 50MG PER DAY
     Route: 048
     Dates: start: 20131203, end: 20140128
  2. TRUVADA [Concomitant]

REACTIONS (1)
  - Headache [Recovered/Resolved]
